FAERS Safety Report 5364336-2 (Version None)
Quarter: 2007Q2

REPORT INFORMATION
  Report Type: 
  Country: None (occurrence: None)
  Receive Date: 20070618
  Receipt Date: 20070606
  Transmission Date: 20071010
  Serious: Yes (Life-Threatening)
  Sender: FDA-Public Use
  Company Number: 2007AL002327

PATIENT
  Age: 55 Year
  Sex: Male

DRUGS (3)
  1. DICLOFENAC SODIUM [Suspect]
     Indication: RHEUMATOID ARTHRITIS
     Dosage: 50 MG;QD;PO
     Route: 048
     Dates: start: 20070121, end: 20070420
  2. DIHYDROCODEINE BITARTRATE INJ [Concomitant]
  3. ACETAMINOPHEN [Concomitant]

REACTIONS (1)
  - NEUTROPENIA [None]
